FAERS Safety Report 16725934 (Version 2)
Quarter: 2019Q3

REPORT INFORMATION
  Report Type: Spontaneous
  Country: AU (occurrence: AU)
  Receive Date: 20190821
  Receipt Date: 20190826
  Transmission Date: 20191005
  Serious: No
  Sender: FDA-Public Use
  Company Number: AU-OTSUKA-2019_029997

PATIENT
  Sex: Female

DRUGS (1)
  1. REXULTI [Suspect]
     Active Substance: BREXPIPRAZOLE
     Indication: PRODUCT USED FOR UNKNOWN INDICATION
     Dosage: UNK
     Route: 065

REACTIONS (1)
  - Product administered to patient of inappropriate age [Unknown]
